FAERS Safety Report 16616036 (Version 2)
Quarter: 2020Q1

REPORT INFORMATION
  Report Type: Report from Study
  Country: US (occurrence: US)
  Receive Date: 20190723
  Receipt Date: 20200220
  Transmission Date: 20200409
  Serious: Yes (Other)
  Sender: FDA-Public Use
  Company Number: US-ASTELLAS-2019US024437

PATIENT
  Sex: Male

DRUGS (2)
  1. ENZALUTAMIDE [Suspect]
     Active Substance: ENZALUTAMIDE
     Indication: HORMONE-REFRACTORY PROSTATE CANCER
     Route: 048
  2. ENZALUTAMIDE [Suspect]
     Active Substance: ENZALUTAMIDE
     Route: 048
     Dates: start: 20190122

REACTIONS (11)
  - Fall [Unknown]
  - Oesophageal obstruction [Unknown]
  - Hypoacusis [Unknown]
  - Somnolence [Not Recovered/Not Resolved]
  - Fatigue [Not Recovered/Not Resolved]
  - Product use complaint [Unknown]
  - Malignant neoplasm progression [Unknown]
  - Product size issue [Unknown]
  - Foreign body in respiratory tract [Unknown]
  - Discomfort [Not Recovered/Not Resolved]
  - Dizziness [Unknown]
